FAERS Safety Report 9336538 (Version 1)
Quarter: 2013Q2

REPORT INFORMATION
  Report Type: Spontaneous
  Country: US (occurrence: US)
  Receive Date: 20130607
  Receipt Date: 20130607
  Transmission Date: 20140414
  Serious: No
  Sender: FDA-Public Use
  Company Number: US-PFIZER INC-2013171049

PATIENT
  Age: 55 Year
  Sex: Female

DRUGS (4)
  1. XELJANZ [Suspect]
     Indication: RHEUMATOID ARTHRITIS
     Dosage: 5 MG, 2X/DAY
     Route: 048
     Dates: start: 20130311
  2. SYNTHROID [Concomitant]
     Dosage: 125 UG, UNK
  3. GABAPENTIN [Concomitant]
     Dosage: 300 MG, UNK
  4. TOPROL XL [Concomitant]
     Dosage: 50 MG, UNK

REACTIONS (1)
  - Headache [Unknown]
